FAERS Safety Report 25100666 (Version 1)
Quarter: 2025Q1

REPORT INFORMATION
  Report Type: Spontaneous
  Country: JP (occurrence: JP)
  Receive Date: 20250320
  Receipt Date: 20250320
  Transmission Date: 20250409
  Serious: Yes (Hospitalization, Other)
  Sender: MERCK SHARP & DOHME LLC
  Company Number: JP-MSD-2412JPN004431JAA

PATIENT
  Age: 8 Decade
  Sex: Male

DRUGS (1)
  1. KEYTRUDA [Suspect]
     Active Substance: PEMBROLIZUMAB
     Indication: Ureteric cancer
     Route: 065

REACTIONS (4)
  - Hepatic enzyme increased [Recovering/Resolving]
  - Malignant neoplasm progression [Recovering/Resolving]
  - Adrenal insufficiency [Recovering/Resolving]
  - Decreased appetite [Recovering/Resolving]
